FAERS Safety Report 4433415-6 (Version None)
Quarter: 2004Q3

REPORT INFORMATION
  Report Type: 
  Country: None (occurrence: None)
  Receive Date: 20040824
  Receipt Date: 20040812
  Transmission Date: 20050211
  Serious: Yes (Death, Life-Threatening, Hospitalization, Other)
  Sender: FDA-Public Use
  Company Number: TR-JNJFOC-20040803969

PATIENT
  Age: 26 Year
  Sex: Male
  Weight: 43 kg

DRUGS (7)
  1. REMICADE [Suspect]
     Indication: CROHN'S DISEASE
     Dosage: SEE IMAGE
     Route: 042
     Dates: start: 20040707, end: 20040707
  2. REMICADE [Suspect]
     Indication: TAKAYASU'S ARTERITIS
     Dosage: SEE IMAGE
     Route: 042
     Dates: start: 20040707, end: 20040707
  3. REMICADE [Suspect]
     Indication: CROHN'S DISEASE
     Dosage: SEE IMAGE
     Route: 042
     Dates: start: 20040722, end: 20040722
  4. REMICADE [Suspect]
     Indication: TAKAYASU'S ARTERITIS
     Dosage: SEE IMAGE
     Route: 042
     Dates: start: 20040722, end: 20040722
  5. AZOTHIOPRINE (AZATHIOPRINE) [Concomitant]
  6. THALIDOMIDE (THALIDOMIDE) [Concomitant]
  7. PREDISOLONE (PREDNISOLONE) [Concomitant]

REACTIONS (4)
  - CEREBRAL INFARCTION [None]
  - LOSS OF CONSCIOUSNESS [None]
  - PNEUMONIA [None]
  - SEPSIS [None]
